FAERS Safety Report 10981661 (Version 1)
Quarter: 2015Q1

REPORT INFORMATION
  Report Type: Spontaneous
  Country: US (occurrence: None)
  Receive Date: 20150227
  Receipt Date: 20150227
  Transmission Date: 20150721
  Serious: Yes (Other)
  Sender: FDA-Public Use
  Company Number: LMI-2014-00226

PATIENT
  Age: 55 Year
  Sex: Male
  Weight: 136.5 kg

DRUGS (1)
  1. DEFINITY [Suspect]
     Active Substance: PERFLUTREN
     Dosage: (1 D), INTRAVENOUS BOLUS
     Route: 040
     Dates: start: 20140524, end: 20140524

REACTIONS (1)
  - Anaphylactic reaction [None]

NARRATIVE: CASE EVENT DATE: 20140524
